FAERS Safety Report 6436754-2 (Version None)
Quarter: 2009Q4

REPORT INFORMATION
  Report Type: 
  Country: None (occurrence: None)
  Receive Date: 20091109
  Receipt Date: 20091104
  Transmission Date: 20100525
  Serious: No
  Sender: FDA-Public Use
  Company Number: 20096851

PATIENT
  Age: 10 Year
  Sex: Male

DRUGS (1)
  1. LIORESAL [Suspect]
     Indication: MUSCLE SPASTICITY
     Dosage: SEE B5

REACTIONS (3)
  - DEVICE DISLOCATION [None]
  - KELOID SCAR [None]
  - MUSCLE TIGHTNESS [None]
